FAERS Safety Report 5023730-X (Version None)
Quarter: 2006Q2

REPORT INFORMATION
  Report Type: 
  Country: None (occurrence: None)
  Receive Date: 20060606
  Receipt Date: 20060522
  Transmission Date: 20061013
  Serious: Yes (Life-Threatening, Other)
  Sender: FDA-Public Use
  Company Number: HQWYE449922MAY06

PATIENT
  Age: 78 Year
  Sex: Male

DRUGS (5)
  1. AMIODARONE                  (AMIODARONE, INJECTION) [Suspect]
     Indication: ATRIAL FIBRILLATION
     Dosage: SEE IMAGE
     Route: 042
  2. AMIODARONE                  (AMIODARONE, INJECTION) [Suspect]
     Indication: ATRIAL FLUTTER
     Dosage: SEE IMAGE
     Route: 042
  3. DIGOXIN [Concomitant]
  4. ISOSORBIDE DINITRATE [Concomitant]
  5. UNSPECIFIED DIURETIC [Concomitant]

REACTIONS (5)
  - BRONCHOSPASM [None]
  - ELECTROCARDIOGRAM QT CORRECTED INTERVAL PROLONGED [None]
  - PARKINSONISM [None]
  - PULMONARY OEDEMA [None]
  - SEPTIC SHOCK [None]
